FAERS Safety Report 10029547 (Version 1)
Quarter: 2014Q1

REPORT INFORMATION
  Report Type: Spontaneous
  Country: US (occurrence: None)
  Receive Date: 20140320
  Receipt Date: 20140320
  Transmission Date: 20141002
  Serious: Yes (Disabling)
  Sender: FDA-Public Use
  Company Number: None

PATIENT
  Age: 28 Year
  Sex: Female
  Weight: 63.5 kg

DRUGS (1)
  1. FENTANYL CITRATE [Suspect]
     Indication: COMPLEX REGIONAL PAIN SYNDROME
     Dosage: 1 EVERY 4-6/HRS AS NEED. MAX 4. AS NEEDED BETWEEN CHEEK AND GUMS

REACTIONS (4)
  - Dental caries [None]
  - Oral pain [None]
  - Weight decreased [None]
  - Toothache [None]
